FAERS Safety Report 9878439 (Version 2)
Quarter: 2014Q1

REPORT INFORMATION
  Report Type: Spontaneous
  Country: None (occurrence: US)
  Receive Date: 20140206
  Receipt Date: 20140206
  Transmission Date: 20141002
  Serious: No
  Sender: FDA-Public Use
  Company Number: US-ALLERGAN-1311587US

PATIENT
  Sex: Male

DRUGS (1)
  1. BOTOX [Suspect]
     Indication: SALIVARY HYPERSECRETION

REACTIONS (4)
  - Off label use [Unknown]
  - Injection site pain [Unknown]
  - Injection site bruising [Unknown]
  - Injection site swelling [Unknown]
